FAERS Safety Report 8584790-2 (Version None)
Quarter: 2012Q3

REPORT INFORMATION
  Report Type: 
  Country: None (occurrence: None)
  Receive Date: 20120810
  Receipt Date: 20120801
  Transmission Date: 20120928
  Serious: Yes (Hospitalization)
  Sender: FDA-Public Use
  Company Number: GB-SANOFI-AVENTIS-2012SA007082

PATIENT
  Age: 70 Year
  Sex: Male

DRUGS (3)
  1. PREDNISONE TAB [Suspect]
     Indication: PROSTATE CANCER
     Dates: start: 20110623
  2. CABAZITAXEL [Suspect]
     Route: 042
     Dates: start: 20111006, end: 20111006
  3. CABAZITAXEL [Suspect]
     Indication: PROSTATE CANCER
     Route: 042
     Dates: start: 20110623, end: 20110623

REACTIONS (1)
  - NEUTROPENIC SEPSIS [None]
